FAERS Safety Report 6170297-9 (Version None)
Quarter: 2009Q2

REPORT INFORMATION
  Report Type: 
  Country: None (occurrence: None)
  Receive Date: 20090427
  Receipt Date: 20090427
  Transmission Date: 20091009
  Serious: Yes (Disabling)
  Sender: FDA-Public Use
  Company Number: None

PATIENT
  Sex: Female
  Weight: 47.1741 kg

DRUGS (2)
  1. REMICADE [Suspect]
     Indication: ARTHRITIS
     Dosage: 10 Q4WKS
  2. REMICADE [Suspect]
     Indication: CROHN'S DISEASE
     Dosage: 10 Q4WKS

REACTIONS (47)
  - ACTIVITIES OF DAILY LIVING IMPAIRED [None]
  - ANXIETY [None]
  - ARTHRALGIA [None]
  - BACK PAIN [None]
  - BLOOD PRESSURE FLUCTUATION [None]
  - COMPLEMENT FACTOR C3 DECREASED [None]
  - DIARRHOEA [None]
  - DIZZINESS [None]
  - DRUG INEFFECTIVE [None]
  - DRUG INTOLERANCE [None]
  - DYSKINESIA [None]
  - DYSPNOEA [None]
  - DYSSTASIA [None]
  - DYSTONIA [None]
  - ENURESIS [None]
  - EYE DISORDER [None]
  - EYE MOVEMENT DISORDER [None]
  - FATIGUE [None]
  - FEELING ABNORMAL [None]
  - GAIT DISTURBANCE [None]
  - HYPERSOMNIA [None]
  - IMPAIRED DRIVING ABILITY [None]
  - INFLUENZA LIKE ILLNESS [None]
  - INTENTION TREMOR [None]
  - MALAISE [None]
  - MEMORY IMPAIRMENT [None]
  - MENIERE'S DISEASE [None]
  - MIDDLE INSOMNIA [None]
  - MIGRAINE [None]
  - MULTIPLE SCLEROSIS [None]
  - MUSCLE CONTRACTIONS INVOLUNTARY [None]
  - MUSCLE TIGHTNESS [None]
  - MUSCLE TWITCHING [None]
  - MUSCULAR WEAKNESS [None]
  - MUSCULOSKELETAL PAIN [None]
  - NERVOUS SYSTEM DISORDER [None]
  - PAIN [None]
  - PALPITATIONS [None]
  - PARAESTHESIA [None]
  - SENSORY DISTURBANCE [None]
  - SLE ARTHRITIS [None]
  - SOMATOFORM DISORDER [None]
  - TACHYCARDIA [None]
  - TRISMUS [None]
  - VERTIGO [None]
  - VIRAL INFECTION [None]
  - WEIGHT DECREASED [None]
